FAERS Safety Report 9682668 (Version 1)
Quarter: 2013Q4

REPORT INFORMATION
  Report Type: Spontaneous
  Country: DE (occurrence: DE)
  Receive Date: 20131112
  Receipt Date: 20131112
  Transmission Date: 20140711
  Serious: Yes (Hospitalization)
  Sender: FDA-Public Use
  Company Number: DE-ASTRAZENECA-2013SE81756

PATIENT
  Sex: Female
  Weight: 73 kg

DRUGS (5)
  1. SEROQUEL [Suspect]
     Route: 048
     Dates: start: 20120502, end: 20121208
  2. TREVILOR [Suspect]
     Route: 048
     Dates: start: 20120615, end: 20121215
  3. ATOSIL [Suspect]
     Route: 048
     Dates: end: 20121210
  4. CIPRALEX [Concomitant]
  5. MIRTAZAPINE [Concomitant]

REACTIONS (2)
  - Appetite disorder [Unknown]
  - Weight increased [Recovering/Resolving]
